FAERS Safety Report 7378327-3 (Version None)
Quarter: 2011Q1

REPORT INFORMATION
  Report Type: 
  Country: None (occurrence: None)
  Receive Date: 20110323
  Receipt Date: 20110323
  Transmission Date: 20110831
  Serious: No
  Sender: FDA-Public Use
  Company Number: None

PATIENT
  Age: 65 Year
  Sex: Female
  Weight: 106.5953 kg

DRUGS (1)
  1. ZITHROMAX [Suspect]
     Indication: BRONCHITIS
     Dosage: 250 MG 2@ ONCE THEN 1 X DAILY
     Dates: start: 20110310

REACTIONS (8)
  - PRODUCT COLOUR ISSUE [None]
  - WRONG DRUG ADMINISTERED [None]
  - INCORRECT DOSE ADMINISTERED [None]
  - PRODUCT SIZE ISSUE [None]
  - PRODUCT COATING ISSUE [None]
  - MUSCLE SPASMS [None]
  - WRONG TECHNIQUE IN DRUG USAGE PROCESS [None]
  - PRODUCT SHAPE ISSUE [None]
